FAERS Safety Report 9186107 (Version 3)
Quarter: 2013Q2

REPORT INFORMATION
  Report Type: Spontaneous
  Country: US (occurrence: US)
  Receive Date: 20130325
  Receipt Date: 20130520
  Transmission Date: 20140414
  Serious: Yes (Death, Hospitalization)
  Sender: FDA-Public Use
  Company Number: US-ASTELLAS-2013US002998

PATIENT
  Age: 75 Year
  Sex: Male
  Weight: 84 kg

DRUGS (1)
  1. XTANDI (ENZALUTAMIDE) [Suspect]
     Indication: PROSTATE CANCER
     Dosage: UNK %, UID/QD
     Route: 065

REACTIONS (8)
  - Subdural haematoma [Unknown]
  - Respiratory failure [Unknown]
  - Fall [Unknown]
  - Asthenia [Unknown]
  - Empyema [Fatal]
  - Cerebrovascular accident [Fatal]
  - Malignant neoplasm progression [Fatal]
  - Meningitis [Fatal]
